FAERS Safety Report 4267173-5 (Version None)
Quarter: 2004Q1

REPORT INFORMATION
  Report Type: 
  Country: None (occurrence: None)
  Receive Date: 20040107
  Receipt Date: 20031224
  Transmission Date: 20041129
  Serious: Yes (Hospitalization)
  Sender: FDA-Public Use
  Company Number: 2003AP04592

PATIENT
  Age: 62 Year
  Sex: Male

DRUGS (2)
  1. IRESSA [Suspect]
     Indication: NON-SMALL CELL LUNG CANCER
     Dosage: 250 MG DAILY PO
     Route: 048
     Dates: start: 20031216
  2. VINORELBINE TARTRATE [Suspect]
     Dates: end: 20031201

REACTIONS (1)
  - WHITE BLOOD CELL COUNT DECREASED [None]
